FAERS Safety Report 8152096-1 (Version None)
Quarter: 2012Q1

REPORT INFORMATION
  Report Type: 
  Country: None (occurrence: None)
  Receive Date: 20120221
  Receipt Date: 20120214
  Transmission Date: 20120608
  Serious: Yes (Other)
  Sender: FDA-Public Use
  Company Number: FR-PFIZER INC-2012039009

PATIENT
  Age: 58 Year
  Sex: Male

DRUGS (6)
  1. DEPAKENE [Concomitant]
     Indication: IDIOPATHIC GENERALISED EPILEPSY
     Dosage: 500 MG IN THE MORNING AND 500 MG IN THE EVENING
     Route: 048
  2. NEXIUM [Concomitant]
     Dosage: 20 MG, 1X/DAY
     Route: 048
     Dates: start: 20110621
  3. BACTRIM DS [Concomitant]
     Dosage: 1 DF, ON MONDAY, WEDNESDAY AND FRIDAY
     Route: 048
     Dates: start: 20110621
  4. VALACYCLOVIR HYDROCHLORIDE [Concomitant]
     Dosage: 2 DF, 1X/DAY
     Route: 048
     Dates: start: 20110621
  5. CYTARABINE [Suspect]
     Indication: LYMPHOMA
     Dosage: 1 COURSE EVERY 15 DAYS
     Route: 042
     Dates: start: 20111201
  6. DEPAKENE [Concomitant]
     Dosage: 500 MG, 3X/DAY
     Route: 048
     Dates: start: 20111201

REACTIONS (1)
  - GRAND MAL CONVULSION [None]
